FAERS Safety Report 13849898 (Version 1)
Quarter: 2017Q3

REPORT INFORMATION
  Report Type: Report from Study
  Country: ES (occurrence: ES)
  Receive Date: 20170809
  Receipt Date: 20170809
  Transmission Date: 20171127
  Serious: Yes (Hospitalization)
  Sender: FDA-Public Use
  Company Number: ES-ASTELLAS-2017US031088

PATIENT
  Age: 75 Year
  Sex: Female
  Weight: 48 kg

DRUGS (1)
  1. TACROLIMUS. [Suspect]
     Active Substance: TACROLIMUS
     Indication: IMMUNOSUPPRESSION
     Route: 048
     Dates: start: 20170529

REACTIONS (1)
  - Enterocutaneous fistula [Recovered/Resolved]

NARRATIVE: CASE EVENT DATE: 20170616
